FAERS Safety Report 7520424-3 (Version None)
Quarter: 2011Q2

REPORT INFORMATION
  Report Type: 
  Country: None (occurrence: None)
  Receive Date: 20110602
  Receipt Date: 20110519
  Transmission Date: 20111010
  Serious: Yes (Other)
  Sender: FDA-Public Use
  Company Number: FR-WATSON-2011-07076

PATIENT
  Age: 64 Year
  Sex: Male

DRUGS (2)
  1. RAPAFLO [Suspect]
     Indication: BENIGN PROSTATIC HYPERPLASIA
     Dosage: 1 DF, DAILY
     Route: 048
     Dates: start: 20110512, end: 20110513
  2. ATACAND [Concomitant]
     Indication: HYPERTENSION
     Dosage: 1 DF DAILY
     Route: 065

REACTIONS (3)
  - ORTHOSTATIC HYPOTENSION [None]
  - FALL [None]
  - LOSS OF CONSCIOUSNESS [None]
